FAERS Safety Report 6669128-X (Version None)
Quarter: 2010Q2

REPORT INFORMATION
  Report Type: 
  Country: None (occurrence: None)
  Receive Date: 20100402
  Receipt Date: 20100323
  Transmission Date: 20101027
  Serious: Yes (Hospitalization, Other)
  Sender: FDA-Public Use
  Company Number: 234422J08USA

PATIENT
  Age: 69 Year
  Sex: Female
  Weight: 68 kg

DRUGS (6)
  1. REBIF [Suspect]
     Indication: MULTIPLE SCLEROSIS
     Dosage: 44 MCG, 3 IN 1 WEEKS, 22 MCG, 3 IN 1 WEEKS, SUBCUTANEOUS
     Route: 058
     Dates: start: 20070810, end: 20100101
  2. REBIF [Suspect]
     Indication: MULTIPLE SCLEROSIS
     Dosage: 44 MCG, 3 IN 1 WEEKS, 22 MCG, 3 IN 1 WEEKS, SUBCUTANEOUS
     Route: 058
     Dates: start: 20100101
  3. PANTOPRAZOLE SODIUM [Concomitant]
  4. LOTREL [Concomitant]
  5. TOPROL-XL [Concomitant]
  6. VYTORIN [Concomitant]

REACTIONS (7)
  - BLOOD COUNT ABNORMAL [None]
  - FACIAL PAIN [None]
  - GAIT DISTURBANCE [None]
  - GASTROINTESTINAL ULCER HAEMORRHAGE [None]
  - INTESTINAL POLYP [None]
  - PAIN IN EXTREMITY [None]
  - PAIN IN JAW [None]
